FAERS Safety Report 4708351-8 (Version None)
Quarter: 2005Q3

REPORT INFORMATION
  Report Type: 
  Country: None (occurrence: None)
  Receive Date: 20050705
  Receipt Date: 20050705
  Transmission Date: 20060218
  Serious: Yes (Other)
  Sender: FDA-Public Use
  Company Number: None

PATIENT
  Age: 31 Year
  Sex: Male

DRUGS (1)
  1. PATELLA LIGAMENT HEMI FROZEN [Suspect]

REACTIONS (3)
  - DEVICE MALFUNCTION [None]
  - GRAFT DYSFUNCTION [None]
  - PHARMACEUTICAL PRODUCT COMPLAINT [None]
